FAERS Safety Report 12543703 (Version 1)
Quarter: 2016Q3

REPORT INFORMATION
  Report Type: Spontaneous
  Country: US (occurrence: None)
  Receive Date: 20160708
  Receipt Date: 20160708
  Transmission Date: 20161109
  Serious: Yes (Other)
  Sender: FDA-Public Use
  Company Number: None

PATIENT
  Age: 65 Year
  Sex: Female
  Weight: 96.16 kg

DRUGS (23)
  1. IRON [Concomitant]
     Active Substance: IRON
  2. ASPIRIN. [Concomitant]
     Active Substance: ASPIRIN
  3. PEN NEEDLES [Concomitant]
  4. JANUVIA [Concomitant]
     Active Substance: SITAGLIPTIN PHOSPHATE
  5. CENTRUM SILVER ADULT 50+ [Concomitant]
  6. ASCENSIA BREEZE [Concomitant]
  7. DELICA [Concomitant]
  8. ENBREL [Concomitant]
     Active Substance: ETANERCEPT
  9. FAMOTIDINE. [Concomitant]
     Active Substance: FAMOTIDINE
  10. VITAMIN C [Concomitant]
     Active Substance: ASCORBIC ACID
  11. CARVEDILOL. [Concomitant]
     Active Substance: CARVEDILOL
  12. SIMVASTATIN. [Concomitant]
     Active Substance: SIMVASTATIN
  13. OMETOUCH VERIO STRP (GLUCOSE BLOOD) [Concomitant]
  14. BREO ELLIPTA [Concomitant]
     Active Substance: FLUTICASONE FUROATE\VILANTEROL TRIFENATATE
  15. SUCRALFATE. [Concomitant]
     Active Substance: SUCRALFATE
  16. PROAIR HFA [Concomitant]
     Active Substance: ALBUTEROL SULFATE
  17. MAGNESIUM [Concomitant]
     Active Substance: MAGNESIUM
  18. TOUJEO [Suspect]
     Active Substance: INSULIN GLARGINE
     Indication: DIABETES MELLITUS
     Route: 058
     Dates: start: 20160211, end: 20160402
  19. LISINOPRIL. [Concomitant]
     Active Substance: LISINOPRIL
  20. VITAMIN B12 [Concomitant]
     Active Substance: CYANOCOBALAMIN
  21. DILTIAZEM. [Concomitant]
     Active Substance: DILTIAZEM
  22. FUROSEMIDE. [Concomitant]
     Active Substance: FUROSEMIDE
  23. ALPRAZOLAM. [Concomitant]
     Active Substance: ALPRAZOLAM

REACTIONS (2)
  - Rash pruritic [None]
  - Rash [None]

NARRATIVE: CASE EVENT DATE: 20160402
